FAERS Safety Report 6283500-1 (Version None)
Quarter: 2009Q3

REPORT INFORMATION
  Report Type: 
  Country: None (occurrence: None)
  Receive Date: 20090721
  Receipt Date: 20090721
  Transmission Date: 20100115
  Serious: Yes (Other)
  Sender: FDA-Public Use
  Company Number: None

PATIENT
  Age: 58 Year
  Sex: Female
  Weight: 84.8226 kg

DRUGS (12)
  1. ORENCIA [Suspect]
     Indication: RHEUMATOID ARTHRITIS
     Dosage: 750 MG FIRST DOSE IV DRIP
     Route: 041
     Dates: start: 20090716, end: 20090716
  2. PREDNISONE TAB [Concomitant]
  3. LEFLUNOMIDE [Concomitant]
  4. LEVOTHYROXINE SODIUM [Concomitant]
  5. RANITIDINE [Concomitant]
  6. LOVASTATIN [Concomitant]
  7. PLAVIX [Concomitant]
  8. HUMULIN R [Concomitant]
  9. HUMULIN N [Concomitant]
  10. ASPIRIN [Concomitant]
  11. CALCIUM [Concomitant]
  12. MULTI-VITAMIN [Concomitant]

REACTIONS (4)
  - DYSPNOEA [None]
  - HYPOXIA [None]
  - INFUSION RELATED REACTION [None]
  - RASH [None]
